FAERS Safety Report 20985878 (Version 1)
Quarter: 2022Q2

REPORT INFORMATION
  Report Type: Spontaneous
  Country: IN (occurrence: IN)
  Receive Date: 20220621
  Receipt Date: 20220621
  Transmission Date: 20220721
  Serious: Yes (Other)
  Sender: FDA-Public Use
  Company Number: IN-STRIDES ARCOLAB LIMITED-2022SP007365

PATIENT
  Age: 45 Year
  Sex: Male

DRUGS (2)
  1. METHOTREXATE [Suspect]
     Active Substance: METHOTREXATE
     Indication: Psoriasis
     Dosage: 15 MILLIGRAM, PER DAY
     Route: 048
  2. METHOTREXATE [Suspect]
     Active Substance: METHOTREXATE
     Dosage: RE-INITIATED AFTER 4 WEEKS
     Route: 048

REACTIONS (9)
  - Accidental overdose [Unknown]
  - Haematology test abnormal [Recovered/Resolved]
  - Oral mucosa erosion [Recovered/Resolved]
  - Skin ulcer [Recovered/Resolved]
  - Hepatotoxicity [Recovered/Resolved]
  - Renal injury [Recovered/Resolved]
  - Overdose [Unknown]
  - Toxicity to various agents [Unknown]
  - Incorrect dose administered [Unknown]
